FAERS Safety Report 8939624 (Version 3)
Quarter: 2013Q2

REPORT INFORMATION
  Report Type: Spontaneous
  Country: US (occurrence: US)
  Receive Date: 20121203
  Receipt Date: 20130522
  Transmission Date: 20140414
  Serious: No
  Sender: FDA-Public Use
  Company Number: US-BIOGENIDEC-2012BI032829

PATIENT
  Age: 27 Year
  Sex: Female

DRUGS (3)
  1. AVONEX [Suspect]
     Indication: MULTIPLE SCLEROSIS
     Route: 030
     Dates: start: 2012, end: 2012
  2. AVONEX [Suspect]
     Indication: MULTIPLE SCLEROSIS
     Route: 030
     Dates: start: 20120716
  3. AVONEX [Suspect]
     Indication: MULTIPLE SCLEROSIS

REACTIONS (24)
  - Chills [Recovered/Resolved]
  - Feeling cold [Unknown]
  - Social avoidant behaviour [Unknown]
  - Visual acuity reduced [Unknown]
  - Vision blurred [Unknown]
  - Vertigo [Unknown]
  - Nervousness [Unknown]
  - Photosensitivity reaction [Unknown]
  - Cognitive disorder [Unknown]
  - Apathy [Unknown]
  - Hypotonia [Unknown]
  - Adverse event [Unknown]
  - Haemorrhage [Recovered/Resolved]
  - Sensory disturbance [Unknown]
  - Memory impairment [Recovered/Resolved]
  - Skin discolouration [Recovered/Resolved with Sequelae]
  - Pain in extremity [Unknown]
  - Influenza like illness [Unknown]
  - Dizziness [Unknown]
  - Feeling abnormal [Unknown]
  - Muscular weakness [Recovered/Resolved]
  - Anxiety [Recovered/Resolved]
  - Fatigue [Recovered/Resolved]
  - Rash papular [Recovered/Resolved]
